FAERS Safety Report 6118848-4 (Version None)
Quarter: 2009Q1

REPORT INFORMATION
  Report Type: 
  Country: None (occurrence: None)
  Receive Date: 20090316
  Receipt Date: 20090306
  Transmission Date: 20090719
  Serious: Yes (Hospitalization)
  Sender: FDA-Public Use
  Company Number: AU-BRISTOL-MYERS SQUIBB COMPANY-14543185

PATIENT
  Age: 60 Year
  Sex: Male

DRUGS (2)
  1. ERBITUX [Suspect]
     Indication: HEAD AND NECK CANCER
     Dates: start: 20090101
  2. RADIATION THERAPY [Concomitant]
     Indication: HEAD AND NECK CANCER

REACTIONS (2)
  - DERMATITIS [None]
  - LOSS OF CONSCIOUSNESS [None]
